FAERS Safety Report 12890973 (Version 1)
Quarter: 2016Q4

REPORT INFORMATION
  Report Type: Spontaneous
  Country: US (occurrence: US)
  Receive Date: 20161025
  Receipt Date: 20161025
  Transmission Date: 20170207
  Serious: No
  Sender: FDA-Public Use
  Company Number: None

PATIENT
  Sex: Male

DRUGS (1)
  1. ZYTIGA [Suspect]
     Active Substance: ABIRATERONE ACETATE
     Indication: PROSTATE CANCER
     Dates: start: 20160929, end: 20161003

REACTIONS (3)
  - Hallucination [None]
  - Insomnia [None]
  - Thinking abnormal [None]

NARRATIVE: CASE EVENT DATE: 20161003
